FAERS Safety Report 8186182-7 (Version None)
Quarter: 2012Q1

REPORT INFORMATION
  Report Type: 
  Country: None (occurrence: None)
  Receive Date: 20120306
  Receipt Date: 20120301
  Transmission Date: 20120608
  Serious: No
  Sender: FDA-Public Use
  Company Number: US-PFIZER INC-2012056532

PATIENT
  Age: 55 Year

DRUGS (1)
  1. CHANTIX [Suspect]
     Indication: SMOKING CESSATION THERAPY
     Dosage: UNK

REACTIONS (3)
  - DRUG INEFFECTIVE [None]
  - PALPITATIONS [None]
  - NICOTINE DEPENDENCE [None]
